FAERS Safety Report 13191676 (Version 1)
Quarter: 2017Q1

REPORT INFORMATION
  Report Type: Spontaneous
  Country: US (occurrence: US)
  Receive Date: 20170206
  Receipt Date: 20170206
  Transmission Date: 20170428
  Serious: Yes (Hospitalization, Disabling)
  Sender: FDA-Public Use
  Company Number: None

PATIENT
  Age: 76 Year
  Sex: Female

DRUGS (8)
  1. CALCIUM [Concomitant]
     Active Substance: CALCIUM
  2. ETIDRNATE DISODIUM 200 MG [Suspect]
     Active Substance: ETIDRONATE DISODIUM
     Indication: OSTEOPOROSIS
     Route: 048
     Dates: end: 20160827
  3. METOPROLOL. [Concomitant]
     Active Substance: METOPROLOL
  4. ETIDRONATE [Concomitant]
     Active Substance: ETIDRONATE DISODIUM
  5. MAGNESIUM [Concomitant]
     Active Substance: MAGNESIUM
  6. COLECALCIFEROL [Concomitant]
     Active Substance: CHOLECALCIFEROL
  7. VITAMIN C [Concomitant]
     Active Substance: ASCORBIC ACID
  8. ASPIRIN. [Concomitant]
     Active Substance: ASPIRIN

REACTIONS (6)
  - Pain in jaw [None]
  - Toothache [None]
  - Fatigue [None]
  - Muscular weakness [None]
  - Temporal arteritis [None]
  - Hypoaesthesia oral [None]

NARRATIVE: CASE EVENT DATE: 20160909
